FAERS Safety Report 10886542 (Version 1)
Quarter: 2015Q1

REPORT INFORMATION
  Report Type: Spontaneous
  Country: US (occurrence: None)
  Receive Date: 20150227
  Receipt Date: 20150227
  Transmission Date: 20150721
  Serious: Yes (Hospitalization)
  Sender: FDA-Public Use
  Company Number: None

PATIENT
  Age: 53 Year
  Sex: Female
  Weight: 79.45 kg

DRUGS (3)
  1. CISPLATIN. [Suspect]
     Active Substance: CISPLATIN
     Dates: end: 20140602
  2. TAXOL [Suspect]
     Active Substance: PACLITAXEL
     Dates: end: 20140730
  3. CARBOPLATIN. [Suspect]
     Active Substance: CARBOPLATIN
     Dates: end: 20140730

REACTIONS (5)
  - Haemoglobin decreased [None]
  - Syncope [None]
  - Blood glucose increased [None]
  - Loss of consciousness [None]
  - Asthenia [None]

NARRATIVE: CASE EVENT DATE: 20140802
